FAERS Safety Report 16959161 (Version 1)
Quarter: 2019Q4

REPORT INFORMATION
  Report Type: Spontaneous
  Country: None (occurrence: US)
  Receive Date: 20191024
  Receipt Date: 20191024
  Transmission Date: 20200122
  Serious: Yes (Hospitalization)
  Sender: FDA-Public Use
  Company Number: US-STASON PHARMACEUTICALS, INC.-2076031

PATIENT
  Age: 24 Month
  Sex: Female
  Weight: 13.7 kg

DRUGS (1)
  1. MERCAPTOPURINE. [Suspect]
     Active Substance: MERCAPTOPURINE

REACTIONS (1)
  - Febrile neutropenia [None]
